FAERS Safety Report 8980732 (Version 2)
Quarter: 2013Q1

REPORT INFORMATION
  Report Type: Report from Study
  Country: US (occurrence: US)
  Receive Date: 20121221
  Receipt Date: 20130111
  Transmission Date: 20140127
  Serious: Yes (Death, Hospitalization)
  Sender: FDA-Public Use
  Company Number: US-ACTELION-A-NJ2012-70303

PATIENT
  Age: 52 Year
  Sex: Female

DRUGS (3)
  1. TRACLEER [Suspect]
     Indication: PULMONARY ARTERIAL HYPERTENSION
     Dosage: UNK
     Route: 048
     Dates: start: 20120316, end: 20121123
  2. VENTAVIS [Suspect]
     Indication: PULMONARY ARTERIAL HYPERTENSION
     Dosage: UNK
     Route: 055
  3. SILDENAFIL [Concomitant]

REACTIONS (5)
  - Respiratory failure [Fatal]
  - Dyspnoea [Unknown]
  - Fluid retention [Recovered/Resolved]
  - Bronchitis [Unknown]
  - Throat irritation [Unknown]
